FAERS Safety Report 12436172 (Version 1)
Quarter: 2016Q2

REPORT INFORMATION
  Report Type: Spontaneous
  Country: US (occurrence: US)
  Receive Date: 20160605
  Receipt Date: 20160605
  Transmission Date: 20160815
  Serious: Yes (Life-Threatening, Hospitalization, Other)
  Sender: FDA-Public Use
  Company Number: US-TEVA-663093USA

PATIENT
  Age: 56 Year
  Sex: Male

DRUGS (7)
  1. CLOZAPINE. [Suspect]
     Active Substance: CLOZAPINE
     Indication: SCHIZOPHRENIA
     Dosage: ON DAY 3; THE DOSE WAS FURTHER INCREASED TO 50 MG TWICE DAILY ON DAYS 4-7
     Route: 065
  2. ARIPIPRAZOLE. [Concomitant]
     Active Substance: ARIPIPRAZOLE
     Route: 065
     Dates: start: 201403
  3. CLOZAPINE. [Suspect]
     Active Substance: CLOZAPINE
     Indication: SCHIZOPHRENIA
     Dosage: ON DAY 2; THE DOSE WAS FURTHER INCREASED TO 37.5 MG TWICE DAILY ON DAY 3
     Route: 065
  4. VALPROATE SEMISODIUM [Concomitant]
     Active Substance: DIVALPROEX SODIUM
     Dosage: AT BEDTIME
     Route: 065
     Dates: start: 201403
  5. CLOZAPINE. [Suspect]
     Active Substance: CLOZAPINE
     Indication: SCHIZOPHRENIA
     Dosage: ON DAY 1; THE DOSE WAS FURTHER INCREASED TO 25 MG TWICE DAILY ON DAY 2
     Route: 065
  6. CLOZAPINE. [Suspect]
     Active Substance: CLOZAPINE
     Indication: SCHIZOPHRENIA
     Dosage: ON DAYS 4-7
     Route: 065
  7. PERPHENAZINE. [Concomitant]
     Active Substance: PERPHENAZINE
     Dosage: 20MG DAILY
     Route: 065
     Dates: start: 201403

REACTIONS (5)
  - Oesophageal disorder [Not Recovered/Not Resolved]
  - Pharyngeal disorder [Not Recovered/Not Resolved]
  - Respiratory failure [Unknown]
  - Salivary hypersecretion [Unknown]
  - Pneumonia aspiration [Recovered/Resolved]
